FAERS Safety Report 9663705 (Version 1)
Quarter: 2013Q4

REPORT INFORMATION
  Report Type: Spontaneous
  Country: CN (occurrence: CN)
  Receive Date: 20131101
  Receipt Date: 20131101
  Transmission Date: 20140711
  Serious: Yes (Hospitalization)
  Sender: FDA-Public Use
  Company Number: PHHY2013CN123673

PATIENT
  Age: 86 Year
  Sex: Male
  Weight: 65 kg

DRUGS (1)
  1. TEGRETOL 200 LC [Suspect]
     Dosage: 0.2 G, BID
     Route: 042
     Dates: start: 20120202, end: 20120203

REACTIONS (4)
  - Extrasystoles [Recovered/Resolved]
  - Urinary incontinence [Recovered/Resolved]
  - Hypotension [Recovered/Resolved]
  - Epilepsy [Recovered/Resolved]
